FAERS Safety Report 24454136 (Version 2)
Quarter: 2024Q4

REPORT INFORMATION
  Report Type: Spontaneous
  Country: CN (occurrence: CN)
  Receive Date: 20241017
  Receipt Date: 20241018
  Transmission Date: 20250115
  Serious: No
  Sender: ROCHE
  Company Number: CN-ROCHE-3468878

PATIENT
  Age: 60 Year
  Sex: Female
  Weight: 69.5 kg

DRUGS (2)
  1. MABTHERA [Suspect]
     Active Substance: RITUXIMAB
     Indication: Lymphoma
     Route: 041
     Dates: start: 20231125, end: 20231125
  2. SODIUM CHLORIDE [Concomitant]
     Active Substance: SODIUM CHLORIDE
     Route: 042
     Dates: start: 20231125, end: 20231125

REACTIONS (2)
  - Rash [Recovering/Resolving]
  - Pruritus [Recovering/Resolving]

NARRATIVE: CASE EVENT DATE: 20231125
